FAERS Safety Report 7605262-5 (Version None)
Quarter: 2011Q3

REPORT INFORMATION
  Report Type: 
  Country: None (occurrence: None)
  Receive Date: 20110705
  Receipt Date: 20110620
  Transmission Date: 20111222
  Serious: Yes (Hospitalization)
  Sender: FDA-Public Use
  Company Number: AUR-APL-2011-03641

PATIENT
  Sex: Male

DRUGS (1)
  1. CEFTAZIDIME [Suspect]
     Indication: PRODUCT USED FOR UNKNOWN INDICATION

REACTIONS (4)
  - TREMOR [None]
  - RASH ERYTHEMATOUS [None]
  - DYSPNOEA [None]
  - HYPERHIDROSIS [None]
